FAERS Safety Report 6810715-3 (Version None)
Quarter: 2010Q2

REPORT INFORMATION
  Report Type: 
  Country: None (occurrence: None)
  Receive Date: 20100630
  Receipt Date: 20071120
  Transmission Date: 20101027
  Serious: No
  Sender: FDA-Public Use
  Company Number: US-PFIZER INC-2007094307

PATIENT
  Sex: Female
  Weight: 54.5 kg

DRUGS (6)
  1. NICOTROL [Suspect]
     Indication: SMOKING CESSATION THERAPY
     Dates: start: 20070504
  2. VESICARE [Concomitant]
  3. SUDAFED 12 HOUR [Concomitant]
  4. ACETYLSALICYLIC ACID [Concomitant]
  5. BENADRYL [Concomitant]
  6. ESTRADERM [Concomitant]
     Dosage: 0.05MG TWICE WEEKLY

REACTIONS (1)
  - DYSGEUSIA [None]
